FAERS Safety Report 7830619-7 (Version None)
Quarter: 2011Q4

REPORT INFORMATION
  Report Type: 
  Country: None (occurrence: None)
  Receive Date: 20111021
  Receipt Date: 20111018
  Transmission Date: 20120403
  Serious: Yes (Hospitalization)
  Sender: FDA-Public Use
  Company Number: JP-EISAI INC-E2090-01804-SPO-JP

PATIENT
  Age: 46 Year
  Sex: Female

DRUGS (1)
  1. ZONISAMIDE [Suspect]
     Indication: MENINGIOMA
     Dosage: 300 MG
     Route: 048
     Dates: start: 20110809, end: 20110830

REACTIONS (1)
  - STEVENS-JOHNSON SYNDROME [None]
